FAERS Safety Report 14114576 (Version 7)
Quarter: 2019Q3

REPORT INFORMATION
  Report Type: Report from Study
  Country: DE (occurrence: DE)
  Receive Date: 20171023
  Receipt Date: 20190920
  Transmission Date: 20191004
  Serious: Yes (Death, Hospitalization)
  Sender: FDA-Public Use
  Company Number: DE-ROCHE-1526991

PATIENT
  Age: 51 Year
  Sex: Female
  Weight: 68 kg

DRUGS (11)
  1. PANTOPRAZOL [PANTOPRAZOLE] [Concomitant]
     Active Substance: PANTOPRAZOLE
     Indication: PROPHYLAXIS
     Route: 048
     Dates: start: 20141216, end: 20150614
  2. DEXAMETHASON [DEXAMETHASONE] [Concomitant]
     Active Substance: DEXAMETHASONE
     Indication: PROPHYLAXIS
     Route: 048
     Dates: start: 20150106, end: 20150614
  3. CAPECITABINE. [Suspect]
     Active Substance: CAPECITABINE
     Indication: BREAST CANCER METASTATIC
     Dosage: EVERY FORTNIGHT
     Route: 048
     Dates: start: 20150106, end: 20150119
  4. FENTANYL. [Concomitant]
     Active Substance: FENTANYL
     Indication: PAIN
     Dosage: 100 MCG/H?CUMULATIVE DOSE TO FIRST REACTION 3000 MICROGRAM
     Route: 058
     Dates: start: 20150425, end: 20150614
  5. SALBUTAMOL [Concomitant]
     Active Substance: ALBUTEROL
     Indication: DYSPNOEA EXERTIONAL
  6. TILIDIN [Concomitant]
     Active Substance: NALOXONE HYDROCHLORIDE\TILIDINE HYDROCHLORIDE
     Indication: PAIN
     Route: 048
     Dates: start: 20141216, end: 20150614
  7. TAVOR (LORAZEPAM) [Concomitant]
     Active Substance: LORAZEPAM
     Indication: ANXIETY
     Route: 048
     Dates: start: 20150106, end: 20150614
  8. BEVACIZUMAB. [Suspect]
     Active Substance: BEVACIZUMAB
     Indication: BREAST CANCER
     Route: 042
     Dates: start: 20150106, end: 20150106
  9. SALBUTAMOL [Concomitant]
     Active Substance: ALBUTEROL
     Indication: DYSPNOEA EXERTIONAL
     Route: 048
     Dates: start: 20141216, end: 20150614
  10. NOVAMINSULFON [Concomitant]
     Active Substance: METAMIZOLE
     Indication: PAIN
     Route: 048
     Dates: start: 20150425, end: 20150614
  11. PANTOPRAZOL [PANTOPRAZOLE] [Concomitant]
     Active Substance: PANTOPRAZOLE
     Indication: ABDOMINAL PAIN UPPER

REACTIONS (4)
  - General physical health deterioration [Fatal]
  - Mucosal inflammation [Recovered/Resolved]
  - Oesophagitis [Recovered/Resolved]
  - Metastases to lymph nodes [Recovered/Resolved with Sequelae]

NARRATIVE: CASE EVENT DATE: 20150126
